FAERS Safety Report 7144811-0 (Version None)
Quarter: 2010Q4

REPORT INFORMATION
  Report Type: 
  Country: None (occurrence: None)
  Receive Date: 20101123
  Receipt Date: 20101109
  Transmission Date: 20110411
  Serious: Yes (Other)
  Sender: FDA-Public Use
  Company Number: 2010AP002384

PATIENT
  Age: 40 Year
  Sex: Female

DRUGS (2)
  1. RISPERIDONE [Suspect]
     Indication: BIPOLAR DISORDER
     Dosage: 50 MG; ;IM;QOW IM
     Route: 030
  2. TEGRETOL [Suspect]
     Dosage: 7.5 MG;TID

REACTIONS (7)
  - DERMATITIS [None]
  - DRUG EXPOSURE DURING PREGNANCY [None]
  - DYSPNOEA [None]
  - GRAND MAL CONVULSION [None]
  - MALAISE [None]
  - PREGNANCY [None]
  - TREATMENT NONCOMPLIANCE [None]
